FAERS Safety Report 6584143-2 (Version None)
Quarter: 2010Q1

REPORT INFORMATION
  Report Type: 
  Country: None (occurrence: None)
  Receive Date: 20100216
  Receipt Date: 20100209
  Transmission Date: 20100710
  Serious: Yes (Other)
  Sender: FDA-Public Use
  Company Number: US-JNJFOC-20100205062

PATIENT
  Age: 69 Year
  Sex: Male
  Weight: 81.65 kg

DRUGS (19)
  1. LEVAQUIN [Suspect]
     Indication: ASTHMA
     Route: 048
  2. SYNTHROID [Concomitant]
     Indication: HYPOTHYROIDISM
     Route: 065
  3. ZYRTEC [Concomitant]
     Indication: MULTIPLE ALLERGIES
     Route: 048
  4. ALLOPURINOL [Concomitant]
     Indication: GOUT
     Route: 048
  5. ZOLOFT [Concomitant]
     Indication: ANXIETY
     Route: 048
  6. MULTI-VITAMINS [Concomitant]
     Indication: NUTRITIONAL SUPPORT
     Route: 048
  7. FLOMAX [Concomitant]
     Indication: INFECTION PROPHYLAXIS
     Route: 048
  8. CRESTOR [Concomitant]
     Indication: BLOOD CHOLESTEROL
     Route: 048
  9. AVODART [Concomitant]
     Indication: PROSTATOMEGALY
     Route: 048
  10. ASPIRIN [Concomitant]
     Indication: PROPHYLAXIS
     Route: 048
  11. BONIVA [Concomitant]
     Indication: OSTEOPOROSIS
     Route: 048
  12. VITAMIN D [Concomitant]
     Indication: NUTRITIONAL SUPPORT
     Route: 048
  13. PRANDIN [Concomitant]
     Indication: BLOOD GLUCOSE ABNORMAL
     Route: 065
  14. ATENOLOL [Concomitant]
     Route: 048
  15. ASTELIN [Concomitant]
     Indication: MULTIPLE ALLERGIES
     Route: 045
  16. CLONAZEPAM [Concomitant]
     Indication: THINKING ABNORMAL
     Route: 048
  17. SYMBICORT [Concomitant]
     Indication: ASTHMA
     Route: 065
  18. NITROFURANTOIN [Concomitant]
     Route: 065
  19. UNKNOWN MEDICATION [Concomitant]
     Route: 061

REACTIONS (2)
  - ARTHRALGIA [None]
  - CATARACT [None]
